FAERS Safety Report 13075145 (Version 4)
Quarter: 2017Q1

REPORT INFORMATION
  Report Type: Spontaneous
  Country: FR (occurrence: FR)
  Receive Date: 20161230
  Receipt Date: 20170202
  Transmission Date: 20170428
  Serious: Yes (Other)
  Sender: FDA-Public Use
  Company Number: PHHY2016FR149098

PATIENT
  Age: 40 Year
  Sex: Male

DRUGS (3)
  1. NOOTROPYL [Concomitant]
     Active Substance: PIRACETAM
     Indication: PRODUCT USED FOR UNKNOWN INDICATION
     Route: 065
  2. RITALINE LP [Suspect]
     Active Substance: METHYLPHENIDATE HYDROCHLORIDE
     Indication: ATTENTION DEFICIT/HYPERACTIVITY DISORDER
     Dosage: 2 DF, QD ( 1 CAPSULE IN THE MORNING AND ONE CAPSULE IN THE AFTERNOON)
     Route: 065
     Dates: start: 2015
  3. TRANXENE T-TAB [Concomitant]
     Active Substance: CLORAZEPATE DIPOTASSIUM
     Indication: PRODUCT USED FOR UNKNOWN INDICATION
     Dosage: 10 MG, UNK
     Route: 065

REACTIONS (13)
  - Headache [Recovered/Resolved]
  - Dizziness [Unknown]
  - Head discomfort [Recovered/Resolved]
  - Drug ineffective [Recovered/Resolved]
  - Somnolence [Unknown]
  - Head discomfort [Recovered/Resolved]
  - Neck pain [Unknown]
  - Disturbance in attention [Recovered/Resolved]
  - Torticollis [Recovered/Resolved]
  - Migraine [Unknown]
  - Mental impairment [Recovered/Resolved]
  - Torticollis [Recovered/Resolved]
  - Disturbance in attention [Recovered/Resolved]

NARRATIVE: CASE EVENT DATE: 201610
